FAERS Safety Report 6674898-0 (Version None)
Quarter: 2010Q2

REPORT INFORMATION
  Report Type: 
  Country: None (occurrence: None)
  Receive Date: 20100409
  Receipt Date: 20100325
  Transmission Date: 20101027
  Serious: Yes (Other)
  Sender: FDA-Public Use
  Company Number: GB-BAUSCH-2010BL001703

PATIENT
  Age: 69 Year
  Sex: Male

DRUGS (4)
  1. PREDNISOLONE [Suspect]
     Indication: HODGKIN'S DISEASE
  2. CHLORAMBUCIL [Suspect]
     Indication: HODGKIN'S DISEASE
  3. VINBLASTINE SULFATE [Suspect]
     Indication: HODGKIN'S DISEASE
  4. PROCARBAZINE HYDROCHLORIDE [Suspect]
     Indication: HODGKIN'S DISEASE

REACTIONS (2)
  - APLASIA PURE RED CELL [None]
  - ERYTHEMA INFECTIOSUM [None]
